FAERS Safety Report 8603049-8 (Version None)
Quarter: 2012Q3

REPORT INFORMATION
  Report Type: 
  Country: None (occurrence: None)
  Receive Date: 20120817
  Receipt Date: 20120709
  Transmission Date: 20120928
  Serious: No
  Sender: FDA-Public Use
  Company Number: US-GLAXOSMITHKLINE-A0983773A

PATIENT
  Age: 77 Year
  Sex: Female

DRUGS (6)
  1. ATENOLOL [Concomitant]
  2. ONDANSETRON [Concomitant]
  3. LORAZEPAM [Concomitant]
  4. VOTRIENT [Suspect]
     Indication: SARCOMA
     Dosage: 200MG FOUR TIMES PER DAY
     Route: 048
     Dates: start: 20120601
  5. SYNTHROID [Concomitant]
  6. LISINOPRIL [Concomitant]

REACTIONS (9)
  - MENTAL DISORDER [None]
  - FEELING ABNORMAL [None]
  - AMNESIA [None]
  - INCOHERENT [None]
  - FAECES DISCOLOURED [None]
  - MUCOUS STOOLS [None]
  - CONFUSIONAL STATE [None]
  - DIARRHOEA [None]
  - CONTUSION [None]
